FAERS Safety Report 21480389 (Version 1)
Quarter: 2022Q4

REPORT INFORMATION
  Report Type: Other
  Country: US (occurrence: None)
  Receive Date: 20221019
  Receipt Date: 20221019
  Transmission Date: 20230112
  Serious: Yes (Other)
  Sender: FDA-Public Use
  Company Number: US-ROCHE-3199020

PATIENT
  Age: 35 Year
  Sex: Female
  Weight: 72.640 kg

DRUGS (4)
  1. OCREVUS [Suspect]
     Active Substance: OCRELIZUMAB
     Indication: Relapsing-remitting multiple sclerosis
     Dosage: 300 MG ON DAY 1 AND DAY 15
     Route: 042
     Dates: start: 20220304
  2. RITUXIMAB [Suspect]
     Active Substance: RITUXIMAB
     Indication: Relapsing-remitting multiple sclerosis
     Dosage: NO
     Route: 042
     Dates: start: 201909, end: 202109
  3. WOMENS MULTI ONE A DAY [Concomitant]
  4. BIRTH CONTROL (UNK INGREDIENTS) [Concomitant]

REACTIONS (8)
  - Flushing [Not Recovered/Not Resolved]
  - Rosacea [Not Recovered/Not Resolved]
  - Bacterial vaginosis [Recovered/Resolved]
  - Urinary tract infection [Recovered/Resolved]
  - Dehydration [Not Recovered/Not Resolved]
  - Dry mouth [Not Recovered/Not Resolved]
  - Nephrolithiasis [Not Recovered/Not Resolved]
  - Off label use [Unknown]

NARRATIVE: CASE EVENT DATE: 20200101
